FAERS Safety Report 7642529-9 (Version None)
Quarter: 2011Q3

REPORT INFORMATION
  Report Type: 
  Country: None (occurrence: None)
  Receive Date: 20110728
  Receipt Date: 20110718
  Transmission Date: 20111222
  Serious: Yes (Hospitalization)
  Sender: FDA-Public Use
  Company Number: IT-UCBSA-037406

PATIENT
  Sex: Male
  Weight: 70.1 kg

DRUGS (15)
  1. CERTOLIZUMAB PEGOL [Suspect]
     Indication: CROHN'S DISEASE
     Dosage: C87085: SUBJECT WAS ON CERTOLIZUMAB PEGOL. 25-AUG-2009: 400 MG AT 0, 2 AND 4 WEEKS
     Route: 058
     Dates: start: 20090101
  2. FLUTICASONE FUROATE [Concomitant]
     Indication: DYSPNOEA
     Dosage: INHALATION
     Dates: start: 20091020
  3. TIZANIDINE HCL [Concomitant]
     Indication: FIBROMYALGIA
     Route: 048
     Dates: start: 20110225
  4. HALCION [Concomitant]
     Indication: DEPRESSION
     Route: 048
     Dates: start: 20110117
  5. TACHIPIRNINA [Concomitant]
     Indication: HEADACHE
     Route: 048
  6. OLUX [Concomitant]
     Indication: SEBORRHOEIC DERMATITIS
     Route: 003
     Dates: start: 20100302
  7. LIMPIDEX [Concomitant]
     Indication: GASTROOESOPHAGEAL REFLUX DISEASE
     Route: 048
     Dates: start: 20090326
  8. CACIT VIT D3 [Concomitant]
     Indication: OSTEOPENIA
     Dosage: 1000+800 MG UI ONCE A DAY
     Route: 048
     Dates: start: 20091229
  9. ALFUZOSIN HCL [Concomitant]
     Indication: URINARY RETENTION
     Route: 048
     Dates: start: 20100301
  10. DELORAZEPAM [Concomitant]
     Indication: DEPRESSION
     Route: 048
     Dates: start: 20110117
  11. DULOXETINE HYDROCHLORIDE [Concomitant]
     Indication: DEPRESSION
     Route: 048
     Dates: start: 20110117
  12. CO-EFFERALGAN [Concomitant]
     Indication: ARTHRALGIA
     Dosage: 500+30 MG AS NEEDED
     Route: 048
     Dates: start: 20091001
  13. XILOAL [Concomitant]
     Indication: CONJUNCTIVITIS
     Dosage: 2 DRO AS NEEDED; ROUTE: OCULAR
     Dates: start: 20100301
  14. ADVANTAN [Concomitant]
     Indication: SEBORRHOEIC DERMATITIS
     Route: 003
     Dates: start: 20100302
  15. RIOPAN [Concomitant]
     Indication: GASTROOESOPHAGEAL REFLUX DISEASE
     Route: 048
     Dates: start: 20110326

REACTIONS (2)
  - DEPRESSION [None]
  - JOINT INJURY [None]
